FAERS Safety Report 6581316-X (Version None)
Quarter: 2010Q1

REPORT INFORMATION
  Report Type: 
  Country: None (occurrence: None)
  Receive Date: 20100215
  Receipt Date: 20090709
  Transmission Date: 20100710
  Serious: Yes (Hospitalization, Disabling)
  Sender: FDA-Public Use
  Company Number: US-JNJFOC-20090404457

PATIENT
  Sex: Female

DRUGS (2)
  1. LEVAQUIN [Suspect]
     Indication: CYSTITIS
  2. LEVAQUIN [Suspect]
     Indication: SINUSITIS

REACTIONS (4)
  - COSTOCHONDRITIS [None]
  - PERIARTHRITIS [None]
  - TENDON RUPTURE [None]
  - TENDONITIS [None]
